FAERS Safety Report 7488424-X (Version None)
Quarter: 2011Q2

REPORT INFORMATION
  Report Type: 
  Country: None (occurrence: None)
  Receive Date: 20110518
  Receipt Date: 20110511
  Transmission Date: 20111010
  Serious: Yes (Hospitalization)
  Sender: FDA-Public Use
  Company Number: FR-SANOFI-AVENTIS-2011SA029855

PATIENT
  Age: 53 Year
  Sex: Male

DRUGS (7)
  1. PLAVIX [Suspect]
     Route: 048
     Dates: end: 20100901
  2. PREVISCAN [Suspect]
     Route: 048
     Dates: end: 20100901
  3. ENALAPRIL MALEATE [Concomitant]
     Route: 048
  4. CORDARONE [Concomitant]
     Route: 048
  5. ATORVASTATIN CALCIUM [Concomitant]
     Route: 048
  6. ESOMEPRAZOLE MAGNESIUM [Concomitant]
     Route: 048
  7. DIFFU K [Concomitant]
     Route: 048

REACTIONS (1)
  - ANAEMIA [None]
